FAERS Safety Report 13376417 (Version 6)
Quarter: 2019Q1

REPORT INFORMATION
  Report Type: Spontaneous
  Country: US (occurrence: US)
  Receive Date: 20170328
  Receipt Date: 20190315
  Transmission Date: 20190417
  Serious: No
  Sender: FDA-Public Use
  Company Number: US-PFIZER INC-2017130216

PATIENT
  Age: 44 Year
  Sex: Male
  Weight: 95 kg

DRUGS (11)
  1. LEXAPRO [Concomitant]
     Active Substance: ESCITALOPRAM OXALATE
     Dosage: 20 MG, DAILY
     Route: 048
  2. GENOTROPIN MQ [Suspect]
     Active Substance: SOMATROPIN
     Indication: PITUITARY-DEPENDENT CUSHING^S SYNDROME
     Dosage: 0.4 MG, 1X/DAY
     Dates: start: 2008
  3. CORTEF [Concomitant]
     Active Substance: HYDROCORTISONE
     Indication: FATIGUE
     Dosage: 30 MG, 2X/DAY (20 MG IN THE MORNING AND 10 MG IN THE AFTERNOON AT 2-3 PM)
     Route: 048
  4. BYSTOLIC [Concomitant]
     Active Substance: NEBIVOLOL HYDROCHLORIDE
     Dosage: 5 MG, DAILY
     Route: 048
  5. SYNTHROID [Concomitant]
     Active Substance: LEVOTHYROXINE SODIUM
     Dosage: 175 UG, DAILY (TAKE ONE TABLET BY MOUTH)
     Route: 048
  6. CORTEF [Concomitant]
     Active Substance: HYDROCORTISONE
     Indication: ADRENAL INSUFFICIENCY
  7. HYDROCORTISONE CYPIONATE [Concomitant]
     Active Substance: HYDROCORTISONE CYPIONATE
     Dosage: 1 ML, UNK (EVERY FOURTEEN DAYS)
     Route: 030
  8. VALIUM [Concomitant]
     Active Substance: DIAZEPAM
     Dosage: 5 MG, DAILY (TAKE 1 TAB BY MOUTH)
     Route: 048
  9. GENOTROPIN MQ [Suspect]
     Active Substance: SOMATROPIN
     Dosage: 0.4 MG, DAILY
     Dates: start: 20091016
  10. NORVASC [Concomitant]
     Active Substance: AMLODIPINE BESYLATE
     Dosage: 5 MG, DAILY
     Route: 048
  11. GENOTROPIN MQ [Suspect]
     Active Substance: SOMATROPIN
     Indication: GROWTH HORMONE DEFICIENCY
     Dosage: 0.25 ML, DAILY
     Route: 058
     Dates: start: 2009

REACTIONS (17)
  - Somnolence [Unknown]
  - Asthenia [Unknown]
  - Nasal congestion [Not Recovered/Not Resolved]
  - Sneezing [Not Recovered/Not Resolved]
  - Malaise [Unknown]
  - Disturbance in attention [Unknown]
  - Restlessness [Unknown]
  - Fatigue [Not Recovered/Not Resolved]
  - Blood triglycerides increased [Unknown]
  - Product dose omission [Unknown]
  - Sinus congestion [Not Recovered/Not Resolved]
  - Malaise [Unknown]
  - Nasopharyngitis [Unknown]
  - Depression [Not Recovered/Not Resolved]
  - Anxiety [Not Recovered/Not Resolved]
  - Memory impairment [Unknown]
  - Low density lipoprotein increased [Unknown]

NARRATIVE: CASE EVENT DATE: 201703
